FAERS Safety Report 19771940 (Version 3)
Quarter: 2022Q2

REPORT INFORMATION
  Report Type: Report from Study
  Country: ES (occurrence: ES)
  Receive Date: 20210901
  Receipt Date: 20220421
  Transmission Date: 20220721
  Serious: No
  Sender: FDA-Public Use
  Company Number: ES-AMAROX PHARMA GMBH-AMR2021ES01622

PATIENT
  Age: 65 Year
  Sex: Female

DRUGS (4)
  1. GABAPENTIN [Interacting]
     Active Substance: GABAPENTIN
     Indication: Orthostatic tremor
     Dosage: UNK
  2. PERAMPANEL [Interacting]
     Active Substance: PERAMPANEL
     Indication: Orthostatic tremor
     Dosage: 2 MG, 1X/DAY
  3. PERAMPANEL [Interacting]
     Active Substance: PERAMPANEL
     Dosage: 2 MG, 1X/DAY
  4. PERAMPANEL [Interacting]
     Active Substance: PERAMPANEL
     Dosage: 4 MG, 1X/DAY

REACTIONS (3)
  - Drug interaction [Unknown]
  - Weight increased [Unknown]
  - Balance disorder [Unknown]
